FAERS Safety Report 16260965 (Version 5)
Quarter: 2020Q1

REPORT INFORMATION
  Report Type: Report from Study
  Country: US (occurrence: US)
  Receive Date: 20190501
  Receipt Date: 20200121
  Transmission Date: 20200409
  Serious: Yes (Hospitalization)
  Sender: FDA-Public Use
  Company Number: US-ACTELION-A-US2019-188514

PATIENT
  Age: 83 Year
  Sex: Female

DRUGS (4)
  1. HYDROXYCHLOROQUINE [Concomitant]
     Active Substance: HYDROXYCHLOROQUINE
  2. CLINDAMYCIN. [Concomitant]
     Active Substance: CLINDAMYCIN
  3. LASIX [Concomitant]
     Active Substance: FUROSEMIDE
     Dosage: 40 MG, QD
     Route: 048
  4. OPSUMIT [Suspect]
     Active Substance: MACITENTAN
     Indication: PULMONARY ARTERIAL HYPERTENSION
     Dosage: 10 MG, QD
     Route: 048

REACTIONS (9)
  - Hypoacusis [Unknown]
  - Pulmonary arterial hypertension [Recovered/Resolved]
  - Headache [Unknown]
  - Fatigue [Unknown]
  - Condition aggravated [Unknown]
  - Nausea [Unknown]
  - Decreased appetite [Unknown]
  - Hospitalisation [Unknown]
  - Vision blurred [Unknown]

NARRATIVE: CASE EVENT DATE: 20190306
